FAERS Safety Report 7539504-1 (Version None)
Quarter: 2011Q2

REPORT INFORMATION
  Report Type: 
  Country: None (occurrence: None)
  Receive Date: 20110610
  Receipt Date: 20110603
  Transmission Date: 20111010
  Serious: Yes (Other)
  Sender: FDA-Public Use
  Company Number: CA-PFIZER INC-2011122039

PATIENT
  Age: 68 Year
  Sex: Male

DRUGS (2)
  1. LYRICA [Suspect]
     Dosage: 50 MG, 1X/DAY AT BEDTIME
     Dates: start: 20110506, end: 20110519
  2. LYRICA [Suspect]
     Dosage: 150 MG, 1X/DAY AT BEDTIME
     Dates: start: 20110520

REACTIONS (1)
  - BRADYCARDIA [None]
